FAERS Safety Report 6143833-6 (Version None)
Quarter: 2009Q2

REPORT INFORMATION
  Report Type: 
  Country: None (occurrence: None)
  Receive Date: 20090403
  Receipt Date: 20030828
  Transmission Date: 20091009
  Serious: Yes (Hospitalization)
  Sender: FDA-Public Use
  Company Number: NO-MERCK-0204NOR00008

PATIENT
  Age: 37 Year
  Sex: Male

DRUGS (1)
  1. HYDROCHLOROTHIAZIDE AND AMILORIDE HYDROCHLORIDE [Suspect]
     Indication: HYPERTENSION
     Route: 065
     Dates: start: 20011201, end: 20020203

REACTIONS (2)
  - HEPATITIS [None]
  - JAUNDICE [None]
